FAERS Safety Report 23316440 (Version 4)
Quarter: 2025Q1

REPORT INFORMATION
  Report Type: Spontaneous
  Country: US (occurrence: US)
  Receive Date: 20231219
  Receipt Date: 20250320
  Transmission Date: 20250408
  Serious: No
  Sender: ROCHE
  Company Number: US-ROCHE-3220963

PATIENT
  Age: 39 Year
  Sex: Male

DRUGS (2)
  1. HEMLIBRA [Suspect]
     Active Substance: EMICIZUMAB-KXWH
     Indication: Factor VIII deficiency
     Route: 058
     Dates: start: 202201
  2. HEMLIBRA [Suspect]
     Active Substance: EMICIZUMAB-KXWH
     Dosage: STRENGTH: 105 MG/0.7 ML
     Route: 058
     Dates: start: 202207

REACTIONS (4)
  - Haemorrhage [Recovered/Resolved]
  - Skin laceration [Unknown]
  - Back pain [Unknown]
  - Contusion [Unknown]

NARRATIVE: CASE EVENT DATE: 20221022
